FAERS Safety Report 11054306 (Version 1)
Quarter: 2015Q2

REPORT INFORMATION
  Report Type: Report from Study
  Country: GB (occurrence: None)
  Receive Date: 20150420
  Receipt Date: 20150420
  Transmission Date: 20150821
  Serious: Yes (Hospitalization, Other)
  Sender: FDA-Public Use
  Company Number: 2827880

PATIENT
  Age: 68 Year
  Sex: Male
  Weight: 74 kg

DRUGS (8)
  1. PIPERACILLIN AND TAZOBACTAM [Concomitant]
     Active Substance: PIPERACILLIN SODIUM\TAZOBACTAM SODIUM
  2. PARACETAMOL [Concomitant]
     Active Substance: ACETAMINOPHEN
  3. NITROFURANTOIN. [Concomitant]
     Active Substance: NITROFURANTOIN
  4. BEVACIZUMAB [Suspect]
     Active Substance: BEVACIZUMAB
     Indication: GASTRIC CANCER
     Route: 042
     Dates: start: 20121127
  5. CAPECITABINE. [Suspect]
     Active Substance: CAPECITABINE
     Indication: GASTRIC CANCER
     Dosage: 1000 MG AM AND 1500 MG PM
     Route: 048
     Dates: start: 20121127
  6. SIMVASTATIN. [Concomitant]
     Active Substance: SIMVASTATIN
  7. EPIRUBICIN HYDROCHLORIDE. [Suspect]
     Active Substance: EPIRUBICIN HYDROCHLORIDE
     Indication: GASTRIC CANCER
     Route: 042
     Dates: start: 20121127
  8. CISPLATIN. [Suspect]
     Active Substance: CISPLATIN
     Indication: GASTRIC CANCER
     Route: 042
     Dates: start: 20121127

REACTIONS (4)
  - Post procedural complication [None]
  - Pulmonary embolism [None]
  - Anastomotic leak [None]
  - Empyema [None]

NARRATIVE: CASE EVENT DATE: 20130404
